FAERS Safety Report 9452794 (Version 1)
Quarter: 2013Q3

REPORT INFORMATION
  Report Type: Spontaneous
  Country: JP (occurrence: JP)
  Receive Date: 20130812
  Receipt Date: 20130812
  Transmission Date: 20140515
  Serious: Yes (Hospitalization, Other)
  Sender: FDA-Public Use
  Company Number: PHHY2013JP085685

PATIENT
  Sex: Male

DRUGS (1)
  1. DIOVAN [Suspect]
     Dosage: UNK UKN, UNK
     Route: 048

REACTIONS (6)
  - Cholelithiasis [Unknown]
  - Pancreatitis [Unknown]
  - Pancreatic carcinoma [Unknown]
  - Eye disorder [Unknown]
  - Abnormal sensation in eye [Unknown]
  - Blood pressure increased [Unknown]
